FAERS Safety Report 8289301-7 (Version None)
Quarter: 2012Q2

REPORT INFORMATION
  Report Type: 
  Country: None (occurrence: None)
  Receive Date: 20120417
  Receipt Date: 20120414
  Transmission Date: 20120825
  Serious: Yes (Other)
  Sender: FDA-Public Use
  Company Number: PHHY2012NL007977

PATIENT
  Sex: Male

DRUGS (5)
  1. ZOMETA [Suspect]
     Dosage: 4 MG/100 ML, 320 ML/H 1X PER 28 DAYS
     Route: 042
     Dates: start: 20120102
  2. ZOMETA [Suspect]
     Dosage: 4 MG/100 ML, 320 ML/H 1X PER 28 DAYS
     Route: 042
     Dates: start: 20120227
  3. ZOMETA [Suspect]
     Dosage: 4 MG/100 ML, 320 ML/H 1X PER 28 DAYS
     Route: 042
     Dates: start: 20120326
  4. ZOMETA [Suspect]
     Indication: PROSTATE CANCER METASTATIC
     Dosage: 4 MG/100 ML, 320 ML/H 1X PER 28 DAYS
     Route: 042
     Dates: start: 20110422
  5. ZOMETA [Suspect]
     Dosage: 4 MG/100 ML, 320 ML/H 1X PER 28 DAYS
     Route: 042
     Dates: start: 20120130

REACTIONS (8)
  - GENERAL PHYSICAL HEALTH DETERIORATION [None]
  - NEOPLASM PROGRESSION [None]
  - NEOPLASM MALIGNANT [None]
  - TERMINAL STATE [None]
  - DECREASED APPETITE [None]
  - MUSCULAR WEAKNESS [None]
  - ASTHENIA [None]
  - FATIGUE [None]
